FAERS Safety Report 6602523-3 (Version None)
Quarter: 2010Q1

REPORT INFORMATION
  Report Type: 
  Country: None (occurrence: None)
  Receive Date: 20100217
  Receipt Date: 20100201
  Transmission Date: 20100710
  Serious: Yes (Death, Hospitalization)
  Sender: FDA-Public Use
  Company Number: DSA_42520_2010

PATIENT
  Sex: Female
  Weight: 61.3 kg

DRUGS (7)
  1. ATIVAN [Suspect]
     Indication: INSOMNIA
     Dosage: 1 MG PRN INTRAVENOUS BOLUS, 1 MG QD INTRAVENOUS BOLUS
     Route: 040
     Dates: start: 20090929
  2. ATIVAN [Suspect]
     Indication: INSOMNIA
     Dosage: 1 MG PRN INTRAVENOUS BOLUS, 1 MG QD INTRAVENOUS BOLUS
     Route: 040
     Dates: start: 20091002
  3. WHOLE BRAIN RADIATION THERAPY [Suspect]
     Indication: DRUG USE FOR UNKNOWN INDICATION
     Dosage: 5 DAYS A WEEK X 3 WEEKS
     Dates: start: 20091002, end: 20091022
  4. UNSPECIFIED STUDY DRUG [Suspect]
     Indication: PROPHYLAXIS
     Dosage: DF ORAL
     Route: 048
     Dates: start: 20091006, end: 20091030
  5. DARVOCET [Suspect]
     Indication: PAIN
     Dosage: 100 MG, 1 IN 4 H, AS REQUIRED ORAL
     Route: 048
     Dates: start: 20091028
  6. DECADRON [Suspect]
     Indication: LUNG NEOPLASM MALIGNANT
     Dosage: 4 MG QD ORAL
     Route: 048
     Dates: start: 20090929
  7. PRILOSEC [Suspect]
     Indication: ABDOMINAL DISCOMFORT
     Dosage: 20 MG BID ORAL
     Route: 048
     Dates: start: 20090930

REACTIONS (13)
  - ABDOMINAL DISCOMFORT [None]
  - ACUTE PRERENAL FAILURE [None]
  - ASTHENIA [None]
  - CARDIAC NEOPLASM UNSPECIFIED [None]
  - DEHYDRATION [None]
  - DYSPNOEA EXERTIONAL [None]
  - FATIGUE [None]
  - GENERAL PHYSICAL HEALTH DETERIORATION [None]
  - ISCHAEMIA [None]
  - PAIN [None]
  - PERICARDIAL EFFUSION [None]
  - TROPONIN I INCREASED [None]
  - WEIGHT DECREASED [None]
